FAERS Safety Report 5718450-X (Version None)
Quarter: 2008Q2

REPORT INFORMATION
  Report Type: 
  Country: None (occurrence: None)
  Receive Date: 20080425
  Receipt Date: 20080421
  Transmission Date: 20081010
  Serious: Yes (Other)
  Sender: FDA-Public Use
  Company Number: US-PFIZER INC-2008034873

PATIENT
  Sex: Male
  Weight: 79.8 kg

DRUGS (1)
  1. CELEBREX [Suspect]

REACTIONS (1)
  - CARDIAC DISORDER [None]
